FAERS Safety Report 4871968-4 (Version None)
Quarter: 2005Q4

REPORT INFORMATION
  Report Type: 
  Country: None (occurrence: None)
  Receive Date: 20051230
  Receipt Date: 20051219
  Transmission Date: 20060501
  Serious: Yes (Other)
  Sender: FDA-Public Use
  Company Number: 2005169811

PATIENT
  Sex: Male

DRUGS (2)
  1. VISINE EYE DROPS [Suspect]
     Indication: CONJUNCTIVITIS INFECTIVE
     Dosage: 1-2 DROPS FOUR TIMES DAILY, OPTHALMIC
     Route: 047
     Dates: start: 20051110, end: 20051124
  2. ATORVASTATIN CALCIUM [Concomitant]

REACTIONS (2)
  - VISION BLURRED [None]
  - VISUAL ACUITY REDUCED [None]
